FAERS Safety Report 17488531 (Version 1)
Quarter: 2020Q1

REPORT INFORMATION
  Report Type: Spontaneous
  Country: US (occurrence: US)
  Receive Date: 20200220
  Receipt Date: 20200220
  Transmission Date: 20200409
  Serious: Yes (Life-Threatening)
  Sender: FDA-Public Use
  Company Number: None

PATIENT
  Age: 51 Year
  Sex: Female
  Weight: 79.83 kg

DRUGS (1)
  1. PROPOFOL 200MG/20ML [Suspect]
     Active Substance: PROPOFOL
     Indication: ANAESTHESIA
     Route: 042

REACTIONS (1)
  - Airway complication of anaesthesia [None]

NARRATIVE: CASE EVENT DATE: 20200212
